FAERS Safety Report 6087124-0 (Version None)
Quarter: 2009Q1

REPORT INFORMATION
  Report Type: 
  Country: None (occurrence: None)
  Receive Date: 20090211
  Receipt Date: 20090202
  Transmission Date: 20090719
  Serious: Yes (Other)
  Sender: FDA-Public Use
  Company Number: CHPA2009US01614

PATIENT
  Age: 41 Year
  Sex: Female
  Weight: 72.6 kg

DRUGS (12)
  1. MAALOX ANTACID/ANTIGAS MAX LIQ (NCH)(MAGNESIUM HYDROXIDE, ALUMINIUM HY [Suspect]
     Indication: GASTRIC ULCER
     Dosage: 12 TSP, QD,
  2. NEXIUM [Concomitant]
  3. ATENOLOL [Concomitant]
  4. LOTREL [Concomitant]
  5. LIPITOR /NET/ (ATORVASTATIN CALCIUM) [Concomitant]
  6. LEVOXYL [Concomitant]
  7. VITAMIN B (NO INGREDIENTS/SUBSTANCES) [Concomitant]
  8. POTASSIUM CHLORIDE [Concomitant]
  9. MAXZIDE [Concomitant]
  10. CALCIUM WITH VITAMIN D (CALCIUM PHOSPHATE, CALCIUM SODIUM LACTATE, ERG [Concomitant]
  11. FOLIC ACID [Concomitant]
  12. MULTI-VITAMINS [Concomitant]

REACTIONS (3)
  - BLOOD CHOLESTEROL INCREASED [None]
  - GALLBLADDER OPERATION [None]
  - GOITRE [None]
